FAERS Safety Report 7092635-5 (Version None)
Quarter: 2010Q4

REPORT INFORMATION
  Report Type: 
  Country: None (occurrence: None)
  Receive Date: 20101110
  Receipt Date: 20101101
  Transmission Date: 20110411
  Serious: Yes (Congenital Anomaly)
  Sender: FDA-Public Use
  Company Number: US-US-EMD SERONO, INC.-231313J09USA

PATIENT
  Sex: Male

DRUGS (3)
  1. REBIF [Suspect]
     Route: 064
     Dates: end: 20081001
  2. MIRAPEX [Suspect]
  3. EFFEXOR [Suspect]

REACTIONS (2)
  - CARDIAC SEPTAL DEFECT [None]
  - TRISOMY 21 [None]
